FAERS Safety Report 24380979 (Version 1)
Quarter: 2024Q3

REPORT INFORMATION
  Report Type: Spontaneous
  Country: JP (occurrence: JP)
  Receive Date: 20240930
  Receipt Date: 20240930
  Transmission Date: 20241017
  Serious: Yes (Other)
  Sender: LUNDBECK
  Company Number: JP-SA-2024SA276523

PATIENT

DRUGS (1)
  1. SABRIL [Suspect]
     Active Substance: VIGABATRIN
     Indication: Infantile spasms
     Dosage: GRADUALLY INCREASED TO 500 MG (60 MG/KG)/DAY
     Route: 048

REACTIONS (1)
  - Diffusion-weighted brain MRI abnormal [Recovered/Resolved]
